FAERS Safety Report 7878312-9 (Version None)
Quarter: 2011Q4

REPORT INFORMATION
  Report Type: 
  Country: None (occurrence: None)
  Receive Date: 20111101
  Receipt Date: 20111024
  Transmission Date: 20120403
  Serious: Yes (Other)
  Sender: FDA-Public Use
  Company Number: US-BRISTOL-MYERS SQUIBB COMPANY-16189540

PATIENT
  Age: 48 Year
  Sex: Female

DRUGS (1)
  1. YERVOY [Suspect]
     Dosage: INFUSION 2.

REACTIONS (3)
  - URINARY TRACT INFECTION [None]
  - HEPATIC ENZYME INCREASED [None]
  - DERMATITIS [None]
